FAERS Safety Report 6823631-8 (Version None)
Quarter: 2010Q3

REPORT INFORMATION
  Report Type: 
  Country: None (occurrence: None)
  Receive Date: 20100708
  Receipt Date: 20060814
  Transmission Date: 20110219
  Serious: No
  Sender: FDA-Public Use
  Company Number: US-PFIZER INC-2006102338

PATIENT
  Sex: Female
  Weight: 107.05 kg

DRUGS (11)
  1. CHANTIX [Suspect]
     Indication: SMOKING CESSATION THERAPY
     Dates: start: 20060809, end: 20060814
  2. NORTRIPTYLINE HCL [Interacting]
  3. LAMICTAL [Interacting]
  4. TRAZODONE [Concomitant]
  5. ATIVAN [Concomitant]
  6. SEROQUEL [Concomitant]
  7. MONTELUKAST SODIUM [Concomitant]
  8. CRESTOR [Concomitant]
  9. ZETIA [Concomitant]
  10. PROTONIX [Concomitant]
  11. ALLEGRA [Concomitant]

REACTIONS (4)
  - AGITATION [None]
  - DEPRESSION [None]
  - DRUG INTERACTION [None]
  - TINNITUS [None]
